FAERS Safety Report 7262657-X (Version None)
Quarter: 2011Q1

REPORT INFORMATION
  Report Type: 
  Country: None (occurrence: None)
  Receive Date: 20110130
  Receipt Date: 20101005
  Transmission Date: 20110831
  Serious: No
  Sender: FDA-Public Use
  Company Number: US-ABBOTT-10P-163-0676059-00

PATIENT
  Sex: Female
  Weight: 39.952 kg

DRUGS (3)
  1. HUMIRA [Suspect]
     Indication: SAPHO SYNDROME
     Dates: start: 20101001
  2. FLEXERIL [Concomitant]
     Indication: PRODUCT USED FOR UNKNOWN INDICATION
     Dosage: PRN
  3. LORAZEPAM [Concomitant]
     Indication: PRODUCT USED FOR UNKNOWN INDICATION
     Dosage: PRN

REACTIONS (3)
  - FATIGUE [None]
  - EPHELIDES [None]
  - ABDOMINAL PAIN UPPER [None]
